FAERS Safety Report 8244552-2 (Version None)
Quarter: 2012Q1

REPORT INFORMATION
  Report Type: 
  Country: None (occurrence: None)
  Receive Date: 20120329
  Receipt Date: 20120319
  Transmission Date: 20120608
  Serious: Yes (Hospitalization)
  Sender: FDA-Public Use
  Company Number: FR-FRI-1000028962

PATIENT
  Sex: Female

DRUGS (8)
  1. DONORMYL [Suspect]
     Dosage: 15 MG
     Dates: end: 20111126
  2. TANAKAN [Concomitant]
     Dosage: 120 MG
     Route: 048
  3. LEVOTHYROXINE SODIUM [Concomitant]
     Dosage: 75 MCG
     Route: 048
  4. RAMIPRIL [Concomitant]
     Route: 048
  5. NEXIUM [Concomitant]
     Dosage: 20 MG
     Route: 048
     Dates: end: 20111201
  6. ACETAMINOPHEN [Suspect]
     Dates: start: 20111026, end: 20111126
  7. ESCITALOPRAM [Suspect]
     Dosage: 10 MG
     Route: 048
     Dates: end: 20111126
  8. LEXOMIL [Suspect]
     Dosage: 12 MG
     Dates: end: 20111126

REACTIONS (3)
  - CONFUSIONAL STATE [None]
  - FALL [None]
  - DRUG LEVEL INCREASED [None]
